FAERS Safety Report 5920140-5 (Version None)
Quarter: 2008Q4

REPORT INFORMATION
  Report Type: 
  Country: None (occurrence: None)
  Receive Date: 20081015
  Receipt Date: 20081015
  Transmission Date: 20090506
  Serious: Yes (Hospitalization)
  Sender: FDA-Public Use
  Company Number: None

PATIENT
  Sex: Female
  Weight: 81.3 kg

DRUGS (2)
  1. CYCLOPHOSPHAMIDE [Suspect]
     Dosage: 1176 MG
  2. DOXORUBICIN HYDROCHLORIDE [Suspect]
     Dosage: 118 MG

REACTIONS (2)
  - ERYTHEMA [None]
  - MASS [None]
